FAERS Safety Report 5631312-1 (Version None)
Quarter: 2008Q1

REPORT INFORMATION
  Report Type: 
  Country: None (occurrence: None)
  Receive Date: 20080214
  Receipt Date: 20080201
  Transmission Date: 20080703
  Serious: Yes (Hospitalization)
  Sender: FDA-Public Use
  Company Number: 2008BI003009

PATIENT
  Age: 49 Year
  Sex: Female

DRUGS (9)
  1. AVONEX [Suspect]
     Indication: MULTIPLE SCLEROSIS
     Dosage: IM
     Route: 030
     Dates: start: 20010101, end: 20080101
  2. COZAAR [Concomitant]
  3. SINGULAIR [Concomitant]
  4. ZOCOR [Concomitant]
  5. LYRICA [Concomitant]
  6. LEXAPRO [Concomitant]
  7. WELLBUTRIN [Concomitant]
  8. NASACORT [Concomitant]
  9. PROVIGIL [Concomitant]

REACTIONS (6)
  - BLOOD MAGNESIUM DECREASED [None]
  - BLOOD POTASSIUM DECREASED [None]
  - COGNITIVE DISORDER [None]
  - FATIGUE [None]
  - IMPAIRED WORK ABILITY [None]
  - SINUSITIS [None]
